FAERS Safety Report 23405930 (Version 1)
Quarter: 2024Q1

REPORT INFORMATION
  Report Type: Spontaneous
  Country: US (occurrence: None)
  Receive Date: 20240114
  Receipt Date: 20240114
  Transmission Date: 20240409
  Serious: Yes (Other)
  Sender: FDA-Public Use
  Company Number: None

PATIENT
  Age: 50 Year
  Sex: Female
  Weight: 90 kg

DRUGS (12)
  1. SPRAVATO [Suspect]
     Active Substance: ESKETAMINE
     Indication: Depression
     Dosage: OTHER QUANTITY : 2 INHALATION(S);?
     Route: 045
     Dates: start: 20230828, end: 20231211
  2. SYNTHROID [Concomitant]
     Active Substance: LEVOTHYROXINE SODIUM
  3. CYTOMEL [Concomitant]
     Active Substance: LIOTHYRONINE SODIUM
  4. WELLBUTRIN [Concomitant]
     Active Substance: BUPROPION HYDROCHLORIDE
  5. BUSPAR [Concomitant]
     Active Substance: BUSPIRONE HYDROCHLORIDE
  6. PRAZOSIN [Concomitant]
     Active Substance: PRAZOSIN
  7. CLONAZEPAM [Concomitant]
     Active Substance: CLONAZEPAM
  8. ELIQUIS [Concomitant]
     Active Substance: APIXABAN
  9. ALLEGRA [Concomitant]
     Active Substance: FEXOFENADINE HYDROCHLORIDE
  10. VITAMINS [Concomitant]
     Active Substance: VITAMINS
  11. plus calcium [Concomitant]
  12. VITAMIN D [Concomitant]
     Active Substance: VITAMIN D NOS

REACTIONS (6)
  - Dissociation [None]
  - Cognitive disorder [None]
  - Mental impairment [None]
  - Hypertension [None]
  - Derealisation [None]
  - Memory impairment [None]

NARRATIVE: CASE EVENT DATE: 20231211
